FAERS Safety Report 6397276-0 (Version None)
Quarter: 2009Q4

REPORT INFORMATION
  Report Type: 
  Country: None (occurrence: None)
  Receive Date: 20091012
  Receipt Date: 20090929
  Transmission Date: 20100525
  Serious: Yes (Hospitalization)
  Sender: FDA-Public Use
  Company Number: ES-ELI_LILLY_AND_COMPANY-ES200908005922

PATIENT
  Age: 86 Year
  Sex: Female

DRUGS (3)
  1. FORTEO [Suspect]
     Indication: ARTHRITIS
     Dosage: 20 UG, UNKNOWN
     Route: 058
     Dates: start: 20080201, end: 20090801
  2. LEVOTHROID [Concomitant]
     Dosage: UNK, UNKNOWN
  3. METHOTREXAT [Concomitant]
     Dosage: UNK, UNKNOWN

REACTIONS (10)
  - ARRHYTHMIA [None]
  - BLOOD GLUCOSE INCREASED [None]
  - BLOOD UREA INCREASED [None]
  - DEHYDRATION [None]
  - FATIGUE [None]
  - HERPES VIRUS INFECTION [None]
  - HYPERKALAEMIA [None]
  - OFF LABEL USE [None]
  - RENAL FAILURE [None]
  - VOMITING [None]
